FAERS Safety Report 5713668-4 (Version None)
Quarter: 2008Q2

REPORT INFORMATION
  Report Type: 
  Country: None (occurrence: None)
  Receive Date: 20080418
  Receipt Date: 20080402
  Transmission Date: 20081010
  Serious: Yes (Life-Threatening, Hospitalization)
  Sender: FDA-Public Use
  Company Number: 2008EU000680

PATIENT
  Age: 53 Year
  Sex: Female
  Weight: 66 kg

DRUGS (7)
  1. PROGRAF [Suspect]
     Indication: LIVER TRANSPLANT
     Dosage: 7 MG, UID/QD, ORAL
     Route: 048
     Dates: start: 20080314, end: 20080321
  2. ENCORTON (PREDNISONE ACETATE) [Concomitant]
  3. URSO 250 [Concomitant]
  4. METOCARD (METOPROLOL TARTRATE) [Concomitant]
  5. AMLOZEK (AMLODIPINE) [Concomitant]
  6. TAZPCOM (PIPERACILLIN SOIDIUM, TAXOBACTAM SODIUM) [Concomitant]
  7. DIFLUCAN [Concomitant]

REACTIONS (5)
  - ABNORMAL BEHAVIOUR [None]
  - CONVULSION [None]
  - LIVER TRANSPLANT REJECTION [None]
  - NEUROLOGICAL SYMPTOM [None]
  - TREMOR [None]
